FAERS Safety Report 7217000-9 (Version None)
Quarter: 2011Q1

REPORT INFORMATION
  Report Type: 
  Country: None (occurrence: None)
  Receive Date: 20110110
  Receipt Date: 20101019
  Transmission Date: 20110831
  Serious: No
  Sender: FDA-Public Use
  Company Number: A0887601A

PATIENT
  Age: 67 Year
  Sex: Male

DRUGS (3)
  1. STALEVO 100 [Concomitant]
  2. REQUIP XL [Suspect]
     Indication: PARKINSON'S DISEASE
     Dosage: 2MG THREE TIMES PER DAY
     Route: 048
     Dates: start: 20090701
  3. DIOVAN [Concomitant]

REACTIONS (2)
  - INSOMNIA [None]
  - PRURITUS [None]
